FAERS Safety Report 23483039 (Version 1)
Quarter: 2024Q1

REPORT INFORMATION
  Report Type: Spontaneous
  Country: US (occurrence: US)
  Receive Date: 20240205
  Receipt Date: 20240205
  Transmission Date: 20240410
  Serious: No
  Sender: FDA-Public Use
  Company Number: US-PFIZER INC-PV202300190488

PATIENT
  Age: 90 Year
  Sex: Male

DRUGS (3)
  1. BRAFTOVI [Suspect]
     Active Substance: ENCORAFENIB
     Dosage: 6 CAPSULE EVERY DAY. TAKE WHOLE WITH OR WITHOUT FOOD/6 CAPSULES DAILY
     Route: 048
  2. MEKTOVI [Suspect]
     Active Substance: BINIMETINIB
     Dosage: 3 TABLET 2 TIMES PER DAY/TAKE WHOLE WITH OR WITHOUT FOOD APPROXIMATELY 12 HOURS APART
     Route: 048
  3. ADVIL [Concomitant]
     Active Substance: IBUPROFEN
     Dosage: PRN
     Route: 048

REACTIONS (1)
  - Poor quality sleep [Unknown]

NARRATIVE: CASE EVENT DATE: 20240101
